FAERS Safety Report 16810000 (Version 1)
Quarter: 2019Q3

REPORT INFORMATION
  Report Type: Spontaneous
  Country: US (occurrence: US)
  Receive Date: 20190725
  Receipt Date: 20190725
  Transmission Date: 20191005
  Serious: Yes (Other)
  Sender: FDA-Public Use
  Company Number: None

PATIENT
  Age: 4 Year
  Sex: Male
  Weight: 14.9 kg

DRUGS (1)
  1. VIGABATRIN 500MG [Suspect]
     Active Substance: VIGABATRIN
     Indication: INFANTILE SPASMS
     Dates: start: 20190713, end: 20190717

REACTIONS (3)
  - Condition aggravated [None]
  - Product substitution issue [None]
  - Diarrhoea [None]

NARRATIVE: CASE EVENT DATE: 20190713
